FAERS Safety Report 23269110 (Version 1)
Quarter: 2023Q4

REPORT INFORMATION
  Report Type: Report from Study
  Country: PR (occurrence: PR)
  Receive Date: 20231206
  Receipt Date: 20231206
  Transmission Date: 20240110
  Serious: Yes (Other)
  Sender: FDA-Public Use
  Company Number: PR-ABBVIE-5522419

PATIENT
  Sex: Female

DRUGS (1)
  1. RINVOQ [Suspect]
     Active Substance: UPADACITINIB
     Indication: Rheumatoid arthritis
     Route: 048
     Dates: start: 2021, end: 202311

REACTIONS (9)
  - Arterial perforation [Recovering/Resolving]
  - Oral discomfort [Recovering/Resolving]
  - Weight decreased [Recovering/Resolving]
  - Procedural haemorrhage [Unknown]
  - Blood cholesterol increased [Recovering/Resolving]
  - Tooth infection [Recovering/Resolving]
  - Eating disorder [Recovering/Resolving]
  - Toothache [Recovering/Resolving]
  - Tooth extraction [Unknown]

NARRATIVE: CASE EVENT DATE: 20231031
